FAERS Safety Report 20822615 (Version 3)
Quarter: 2022Q3

REPORT INFORMATION
  Report Type: Spontaneous
  Country: US (occurrence: US)
  Receive Date: 20220512
  Receipt Date: 20220724
  Transmission Date: 20221026
  Serious: No
  Sender: FDA-Public Use
  Company Number: US-CELGENE-USA-20220106575

PATIENT
  Age: 68 Year
  Sex: Male

DRUGS (2)
  1. REVLIMID [Suspect]
     Active Substance: LENALIDOMIDE
     Indication: Plasma cell myeloma
     Dosage: DOSE: 15 MILLIGRAM
     Route: 048
     Dates: start: 202109, end: 20220712
  2. REVLIMID [Suspect]
     Active Substance: LENALIDOMIDE
     Dosage: DOSE: 10 MILLIGRAM, FREQ: TAKE 1 CAPSULE (10MG) BY MOUTH EVERY NIGHT AT BEDTIME ON DAYS 1-21 THEN OF
     Route: 048
     Dates: start: 20210923

REACTIONS (4)
  - Product dose omission in error [Unknown]
  - Rash [Unknown]
  - Off label use [Unknown]
  - Limb discomfort [Unknown]
